FAERS Safety Report 6753550-7 (Version None)
Quarter: 2010Q2

REPORT INFORMATION
  Report Type: 
  Country: None (occurrence: None)
  Receive Date: 20100528
  Receipt Date: 20100517
  Transmission Date: 20101027
  Serious: Yes (Hospitalization, Other)
  Sender: FDA-Public Use
  Company Number: 1-22655025

PATIENT
  Age: 25 Year
  Sex: Male

DRUGS (2)
  1. METFORMIN HCL [Suspect]
     Indication: HYPERINSULINAEMIA
     Dosage: 500 MG 3X/DAILY, ORAL
     Route: 048
     Dates: start: 20080601
  2. AMISULPRIDE [Suspect]
     Indication: MENTAL DISORDER
     Dosage: 200 MG DAILY, ORAL
     Route: 048
     Dates: start: 20080101

REACTIONS (3)
  - DRUG INTERACTION [None]
  - MYOPATHY TOXIC [None]
  - RHABDOMYOLYSIS [None]
